FAERS Safety Report 11275727 (Version 3)
Quarter: 2015Q3

REPORT INFORMATION
  Report Type: Report from Study
  Country: AU (occurrence: AU)
  Receive Date: 20150716
  Receipt Date: 20150914
  Transmission Date: 20151125
  Serious: Yes (Death, Hospitalization)
  Sender: FDA-Public Use
  Company Number: PHHY2013AU044096

PATIENT
  Age: 75 Year
  Sex: Female

DRUGS (1)
  1. LBH589 [Suspect]
     Active Substance: PANOBINOSTAT
     Indication: MYCOSIS FUNGOIDES
     Dosage: 20 MG, MONDAY,WEDNESDAY
     Route: 048
     Dates: start: 20060616, end: 20150206

REACTIONS (9)
  - Pruritus [Recovering/Resolving]
  - Pericardial effusion [Unknown]
  - Actinic keratosis [Recovering/Resolving]
  - Erythema [Recovering/Resolving]
  - Cardiac failure [Fatal]
  - Dermatitis exfoliative [Unknown]
  - Vertigo positional [Recovering/Resolving]
  - Pleural effusion [Unknown]
  - Skin hypertrophy [Recovering/Resolving]

NARRATIVE: CASE EVENT DATE: 20150514
